FAERS Safety Report 10167937 (Version 1)
Quarter: 2014Q2

REPORT INFORMATION
  Report Type: Spontaneous
  Country: US (occurrence: US)
  Receive Date: 20140512
  Receipt Date: 20140512
  Transmission Date: 20141212
  Serious: Yes (Other)
  Sender: FDA-Public Use
  Company Number: US-PFIZER INC-2014124359

PATIENT
  Age: 74 Year
  Sex: Male

DRUGS (1)
  1. BOSULIF [Suspect]
     Indication: ACUTE LYMPHOCYTIC LEUKAEMIA
     Dosage: 500 MG, DAILY
     Dates: start: 20131104

REACTIONS (3)
  - Pulmonary oedema [Unknown]
  - Pulmonary fibrosis [Unknown]
  - Atelectasis [Unknown]
